FAERS Safety Report 7813546-0 (Version None)
Quarter: 2011Q4

REPORT INFORMATION
  Report Type: 
  Country: None (occurrence: None)
  Receive Date: 20111014
  Receipt Date: 20111006
  Transmission Date: 20120403
  Serious: No
  Sender: FDA-Public Use
  Company Number: US-BIOGENIDEC-2011BI038474

PATIENT
  Age: 49 Year
  Sex: Female

DRUGS (3)
  1. TYSABRI [Suspect]
     Indication: MULTIPLE SCLEROSIS
     Route: 042
     Dates: start: 20110829, end: 20110829
  2. TYSABRI [Suspect]
     Route: 042
     Dates: start: 20090602, end: 20100503
  3. AVONEX [Concomitant]
     Indication: MULTIPLE SCLEROSIS
     Route: 030
     Dates: start: 20110403

REACTIONS (4)
  - ASTHENIA [None]
  - FATIGUE [None]
  - DYSURIA [None]
  - BALANCE DISORDER [None]
